FAERS Safety Report 26021840 (Version 2)
Quarter: 2025Q4

REPORT INFORMATION
  Report Type: Spontaneous
  Country: JP (occurrence: JP)
  Receive Date: 20251110
  Receipt Date: 20251217
  Transmission Date: 20260117
  Serious: Yes (Other)
  Sender: EISAI
  Company Number: JP-Eisai-202510015_LEN-RCC_P_1

PATIENT
  Sex: Male

DRUGS (2)
  1. LENVIMA [Suspect]
     Active Substance: LENVATINIB
     Indication: Renal cell carcinoma
     Route: 048
     Dates: start: 20251008, end: 20251105
  2. KEYTRUDA [Suspect]
     Active Substance: PEMBROLIZUMAB
     Indication: Renal cell carcinoma
     Route: 042
     Dates: start: 2025, end: 2025

REACTIONS (1)
  - Adrenal insufficiency [Unknown]

NARRATIVE: CASE EVENT DATE: 20250101
